FAERS Safety Report 4883578-3 (Version None)
Quarter: 2006Q1

REPORT INFORMATION
  Report Type: 
  Country: None (occurrence: None)
  Receive Date: 20060118
  Receipt Date: 20050727
  Transmission Date: 20060701
  Serious: Yes (Hospitalization)
  Sender: FDA-Public Use
  Company Number: US-MERCK-0507USA04241

PATIENT
  Age: 68 Year
  Sex: Female
  Weight: 82 kg

DRUGS (7)
  1. VIOXX [Suspect]
     Indication: BACK PAIN
     Route: 048
     Dates: start: 20030301, end: 20040901
  2. PREMARIN [Concomitant]
     Route: 048
  3. QUININE [Concomitant]
     Route: 065
  4. TAGAMET [Concomitant]
     Route: 048
  5. TOPROL-XL [Concomitant]
     Route: 048
  6. VICODIN [Concomitant]
     Route: 065
  7. CARDIZEM CD [Concomitant]
     Route: 048

REACTIONS (5)
  - CARDIOVASCULAR DISORDER [None]
  - FEMORAL ARTERY OCCLUSION [None]
  - HEPATIC HAEMORRHAGE [None]
  - PERIPHERAL VASCULAR DISORDER [None]
  - VENOUS OCCLUSION [None]
